FAERS Safety Report 21391763 (Version 1)
Quarter: 2022Q3

REPORT INFORMATION
  Report Type: Spontaneous
  Country: US (occurrence: US)
  Receive Date: 20220929
  Receipt Date: 20220929
  Transmission Date: 20221026
  Serious: Yes (Hospitalization)
  Sender: FDA-Public Use
  Company Number: US-GLAXOSMITHKLINE-US2022136303

PATIENT

DRUGS (4)
  1. TRELEGY ELLIPTA [Suspect]
     Active Substance: FLUTICASONE FUROATE\UMECLIDINIUM BROMIDE\VILANTEROL TRIFENATATE
     Indication: Chronic obstructive pulmonary disease
     Dosage: 1 PUFF(S),TRELEGY 200MCG 1 INHALATION DAILY
     Route: 055
     Dates: start: 2020
  2. ALBUTEROL [Concomitant]
     Active Substance: ALBUTEROL
     Indication: Chronic obstructive pulmonary disease
     Dosage: 2.5 MG,NEBULIZER SOLUTION EVERY 4-6 HRS
     Dates: start: 2018
  3. ALBUTEROL [Concomitant]
     Active Substance: ALBUTEROL
     Dosage: UNK,90MCG INHALER PRN
     Dates: start: 2018
  4. SINGULAIR [Concomitant]
     Active Substance: MONTELUKAST SODIUM
     Indication: Chronic obstructive pulmonary disease
     Dosage: 1 MG, QD,PO 1 PER DAY
     Route: 048
     Dates: start: 20220301

REACTIONS (1)
  - Chronic obstructive pulmonary disease [Unknown]
